FAERS Safety Report 12168249 (Version 1)
Quarter: 2016Q1

REPORT INFORMATION
  Report Type: Spontaneous
  Country: CA (occurrence: CA)
  Receive Date: 20160310
  Receipt Date: 20160310
  Transmission Date: 20160526
  Serious: Yes (Other)
  Sender: FDA-Public Use
  Company Number: CA-MYLANLABS-2016M1010524

PATIENT

DRUGS (7)
  1. CYCLOPHOSPHAMIDE. [Suspect]
     Active Substance: CYCLOPHOSPHAMIDE
     Indication: RHABDOID TUMOUR
     Dosage: 60 MG/KG/DOSE OVER 2 DAYS; CYCLIC
     Route: 065
  2. ETOPOSIDE. [Suspect]
     Active Substance: ETOPOSIDE
     Indication: RHABDOID TUMOUR
     Dosage: 2.5 MG/KG/DOSE OVER 3 DAYS; CYCLIC
     Route: 065
  3. METHOTREXATE [Suspect]
     Active Substance: METHOTREXATE
     Indication: RHABDOID TUMOUR
     Dosage: 8 G/KG/M2/DOSE; CYCLIC
     Route: 042
  4. MICAFUNGIN [Concomitant]
     Active Substance: MICAFUNGIN
     Indication: HEPATIC CANDIDIASIS
     Route: 065
  5. CISPLATIN. [Suspect]
     Active Substance: CISPLATIN
     Indication: RHABDOID TUMOUR
     Dosage: 3.5 MG/KG/DOSE; CYCLIC
     Route: 065
  6. IMMUNE GLOBULIN [Concomitant]
     Active Substance: HUMAN IMMUNOGLOBULIN G
     Indication: HYPOGAMMAGLOBULINAEMIA
     Route: 042
  7. VINCRISTINE [Suspect]
     Active Substance: VINCRISTINE
     Indication: RHABDOID TUMOUR
     Dosage: 0.05 MG/KG/DOSE; CYCLIC
     Route: 065

REACTIONS (3)
  - Hepatic necrosis [Recovering/Resolving]
  - Cystitis haemorrhagic [Recovered/Resolved]
  - Adenoviral hepatitis [Recovering/Resolving]
